FAERS Safety Report 16997846 (Version 1)
Quarter: 2019Q4

REPORT INFORMATION
  Report Type: Spontaneous
  Country: US (occurrence: US)
  Receive Date: 20191105
  Receipt Date: 20191105
  Transmission Date: 20200122
  Serious: No
  Sender: FDA-Public Use
  Company Number: US-RADIUS HEALTH INC.-2019US003127

PATIENT
  Age: 80 Year
  Sex: Female

DRUGS (2)
  1. TYMLOS [Suspect]
     Active Substance: ABALOPARATIDE
     Dosage: 80 MCG, UNK
     Route: 058
     Dates: end: 20190829
  2. TYMLOS [Suspect]
     Active Substance: ABALOPARATIDE
     Indication: OSTEOPOROSIS POSTMENOPAUSAL
     Dosage: HALF A DOSE, UNK
     Route: 058
     Dates: start: 201906

REACTIONS (4)
  - Arthralgia [Unknown]
  - Insomnia [Unknown]
  - Product prescribing issue [Unknown]
  - Headache [Unknown]

NARRATIVE: CASE EVENT DATE: 201906
